FAERS Safety Report 5213720-6 (Version None)
Quarter: 2007Q1

REPORT INFORMATION
  Report Type: 
  Country: None (occurrence: None)
  Receive Date: 20070119
  Receipt Date: 20070109
  Transmission Date: 20070707
  Serious: Yes (Hospitalization, Other)
  Sender: FDA-Public Use
  Company Number: US-PFIZER INC-2007002970

PATIENT
  Sex: Male
  Weight: 81.6 kg

DRUGS (27)
  1. LIPITOR [Suspect]
     Indication: BLOOD CHOLESTEROL INCREASED
  2. MINITRAN [Concomitant]
  3. NITROQUICK [Concomitant]
  4. MAVIK [Concomitant]
  5. METFORMIN [Concomitant]
  6. PLAVIX [Concomitant]
  7. PHENYTOIN SODIUM CAP [Concomitant]
  8. DIFLORASONE [Concomitant]
  9. ASPIRIN [Concomitant]
  10. MIRALAX [Concomitant]
  11. MEGESTROL ACETATE [Concomitant]
  12. BENADRYL [Concomitant]
  13. FLONASE [Concomitant]
  14. PROVERA [Concomitant]
  15. ANDROID [Concomitant]
  16. MAXIVISION [Concomitant]
  17. REQUIP [Concomitant]
  18. VESICARE [Concomitant]
  19. LASIX [Concomitant]
  20. TRANSFER FACTOR [Concomitant]
  21. MELATONIN [Concomitant]
  22. SELENIUM SULFIDE [Concomitant]
  23. VITAMIN E [Concomitant]
  24. SAW PALMETTO [Concomitant]
  25. GUAIFENEX [Concomitant]
  26. NYSTATIN [Concomitant]
  27. ALL OTHER THERAPEUTIC PRODUCTS [Concomitant]

REACTIONS (13)
  - AMNESIA [None]
  - ASTHENIA [None]
  - BALANCE DISORDER [None]
  - BRAIN OEDEMA [None]
  - BURNING SENSATION [None]
  - CONVULSION [None]
  - HIATUS HERNIA [None]
  - HYPOAESTHESIA [None]
  - MUSCULAR WEAKNESS [None]
  - OEDEMA PERIPHERAL [None]
  - PAIN [None]
  - PARAESTHESIA [None]
  - POLLAKIURIA [None]
